FAERS Safety Report 6721983-0 (Version None)
Quarter: 2010Q2

REPORT INFORMATION
  Report Type: 
  Country: None (occurrence: None)
  Receive Date: 20100512
  Receipt Date: 20100430
  Transmission Date: 20101027
  Serious: Yes (Death, Hospitalization)
  Sender: FDA-Public Use
  Company Number: B0642500A

PATIENT
  Sex: Female
  Weight: 59 kg

DRUGS (14)
  1. ARIXTRA [Suspect]
     Indication: THROMBOSIS PROPHYLAXIS
     Dosage: 2.5MG PER DAY
     Route: 058
     Dates: start: 20100211, end: 20100225
  2. PLAVIX [Suspect]
     Indication: PROPHYLAXIS
     Dosage: 75MG PER DAY
     Route: 048
     Dates: start: 20100216, end: 20100225
  3. KARDEGIC [Suspect]
     Indication: PROPHYLAXIS
     Dosage: 75MG PER DAY
     Route: 048
     Dates: start: 20100211, end: 20100216
  4. CARDENSIEL [Concomitant]
     Dosage: 2.5MG PER DAY
     Route: 048
     Dates: end: 20100225
  5. LASIX [Concomitant]
     Dosage: 2.5MG PER DAY
     Route: 048
     Dates: end: 20100225
  6. ACUPAN [Concomitant]
     Indication: ABDOMINAL PAIN
     Route: 048
     Dates: start: 20100211, end: 20100225
  7. DAFALGAN [Concomitant]
     Indication: ABDOMINAL PAIN
     Route: 048
     Dates: start: 20100211, end: 20100225
  8. LYRICA [Concomitant]
     Indication: ABDOMINAL PAIN
     Route: 048
     Dates: start: 20100211, end: 20100225
  9. TIORFAN [Concomitant]
     Route: 048
     Dates: start: 20100211, end: 20100225
  10. LACTEOL [Concomitant]
     Route: 048
     Dates: start: 20100211, end: 20100225
  11. CARBOLEVURE [Concomitant]
     Route: 048
     Dates: start: 20100211, end: 20100225
  12. FLAGYL [Concomitant]
     Indication: CLOSTRIDIUM DIFFICILE COLITIS
     Dosage: 500MG THREE TIMES PER DAY
     Route: 048
     Dates: start: 20100212, end: 20100223
  13. BUFLOMEDIL [Concomitant]
     Indication: ARTERITIS OBLITERANS
     Route: 048
     Dates: start: 20100216, end: 20100225
  14. VANCOMYCIN HCL [Concomitant]
     Indication: CLOSTRIDIUM DIFFICILE COLITIS
     Dosage: 125MG FOUR TIMES PER DAY
     Route: 048
     Dates: start: 20100223, end: 20100225

REACTIONS (5)
  - MUSCLE HAEMORRHAGE [None]
  - OFF LABEL USE [None]
  - RETROPERITONEAL HAEMORRHAGE [None]
  - SHOCK HAEMORRHAGIC [None]
  - THROMBOCYTOSIS [None]
